FAERS Safety Report 4751187-2 (Version None)
Quarter: 2005Q3

REPORT INFORMATION
  Report Type: 
  Country: None (occurrence: None)
  Receive Date: 20050822
  Receipt Date: 20050808
  Transmission Date: 20060218
  Serious: Yes (Death)
  Sender: FDA-Public Use
  Company Number: MC200500696

PATIENT
  Age: 89 Year
  Sex: Male

DRUGS (8)
  1. ANGIOMAX [Suspect]
     Indication: CORONARY ARTERY DISEASE
     Dosage: SEE IMAGE
     Route: 042
  2. ASPIRIN [Concomitant]
  3. BETA BLOCKING AGENTS [Concomitant]
  4. COUMADIN [Concomitant]
  5. TICLID [Concomitant]
  6. HEPARIN [Concomitant]
  7. THROMBOLYTIC [Concomitant]
  8. INTEGRILIN [Concomitant]

REACTIONS (1)
  - CARDIAC ARREST [None]
